FAERS Safety Report 4898316-8 (Version None)
Quarter: 2006Q1

REPORT INFORMATION
  Report Type: 
  Country: None (occurrence: None)
  Receive Date: 20060127
  Receipt Date: 20060123
  Transmission Date: 20060701
  Serious: Yes (Other)
  Sender: FDA-Public Use
  Company Number: 2006011149

PATIENT
  Sex: Female
  Weight: 49.8957 kg

DRUGS (1)
  1. SUDAFED 12 HOUR [Suspect]
     Indication: SINUS DISORDER
     Dosage: 1 TAB ONCE/DAY AS NEEDED-2 TABS ONCE, ORAL
     Route: 048

REACTIONS (4)
  - BLOOD PRESSURE INCREASED [None]
  - CONDITION AGGRAVATED [None]
  - HEART RATE INCREASED [None]
  - MIGRAINE [None]
